FAERS Safety Report 16625128 (Version 7)
Quarter: 2020Q3

REPORT INFORMATION
  Report Type: Spontaneous
  Country: US (occurrence: US)
  Receive Date: 20190724
  Receipt Date: 20200921
  Transmission Date: 20201102
  Serious: No
  Sender: FDA-Public Use
  Company Number: US-PFIZER INC-2019299873

PATIENT
  Age: 67 Year
  Sex: Female
  Weight: 83.45 kg

DRUGS (6)
  1. LYRICA [Suspect]
     Active Substance: PREGABALIN
     Indication: SCIATICA
     Dosage: 1.8 1*D
     Dates: start: 201903, end: 2019
  2. VICTOZA [Concomitant]
     Active Substance: LIRAGLUTIDE
     Indication: HYPERGLYCAEMIA
     Dosage: UNK
  3. LYRICA [Suspect]
     Active Substance: PREGABALIN
     Indication: BACK PAIN
     Dosage: 150 MG, 2X/DAY (EVERY 12 HOURS)
     Route: 048
     Dates: start: 20191204, end: 2019
  4. LYRICA [Suspect]
     Active Substance: PREGABALIN
     Indication: PAIN
     Dosage: 400 MG, 2X/DAY
     Route: 048
  5. LYRICA [Suspect]
     Active Substance: PREGABALIN
     Indication: DIABETES MELLITUS
  6. GLIPIZIDE. [Concomitant]
     Active Substance: GLIPIZIDE
     Dosage: 2.5 MIL 1*D
     Dates: start: 201905

REACTIONS (7)
  - Fatigue [Unknown]
  - Depression [Unknown]
  - Prescribed overdose [Unknown]
  - Feeling abnormal [Unknown]
  - Vision blurred [Unknown]
  - Cognitive disorder [Unknown]
  - Withdrawal syndrome [Not Recovered/Not Resolved]

NARRATIVE: CASE EVENT DATE: 201903
